FAERS Safety Report 8307542-7 (Version None)
Quarter: 2012Q2

REPORT INFORMATION
  Report Type: 
  Country: None (occurrence: None)
  Receive Date: 20120424
  Receipt Date: 20120416
  Transmission Date: 20120825
  Serious: Yes (Life-Threatening, Other)
  Sender: FDA-Public Use
  Company Number: JP-CELGENEUS-087-50794-12042415

PATIENT
  Sex: Male
  Weight: 44 kg

DRUGS (19)
  1. LASIX [Concomitant]
     Route: 065
     Dates: end: 20110608
  2. ALDACTONE [Concomitant]
     Route: 065
     Dates: end: 20110531
  3. PREDNISOLONE [Concomitant]
     Route: 065
  4. CANDESARTAN CILEXETIL [Concomitant]
     Route: 065
     Dates: end: 20110602
  5. FLIVAS [Concomitant]
     Route: 065
  6. EVIPROSTAT [Concomitant]
     Route: 065
  7. VIDAZA [Suspect]
     Indication: MYELODYSPLASTIC SYNDROME
     Dosage: 75 MILLIGRAM/SQ. METER
     Route: 058
     Dates: start: 20110523, end: 20110529
  8. RAMELTEON [Concomitant]
     Route: 065
     Dates: start: 20110528, end: 20110529
  9. RISEDRONATE SODIUM [Concomitant]
     Route: 065
  10. MEROPENEM [Concomitant]
     Route: 065
     Dates: start: 20110620, end: 20110624
  11. CEFTAZIDIME [Concomitant]
     Route: 065
     Dates: start: 20110710, end: 20110725
  12. ALFAROL [Concomitant]
     Route: 065
  13. RAMELTEON [Concomitant]
     Route: 065
     Dates: start: 20110628, end: 20110704
  14. LANSOPRAZOLE [Concomitant]
     Route: 065
  15. MAXIPIME [Concomitant]
     Route: 065
     Dates: start: 20110609, end: 20110619
  16. LOXONIN [Concomitant]
     Route: 065
  17. URSO 250 [Concomitant]
     Route: 065
     Dates: start: 20110627
  18. URIEF [Concomitant]
     Route: 065
     Dates: start: 20110622
  19. VIDAZA [Suspect]
     Dosage: 75 MILLIGRAM/SQ. METER
     Route: 058
     Dates: start: 20110628, end: 20110704

REACTIONS (4)
  - BLOOD POTASSIUM INCREASED [None]
  - PLATELET COUNT DECREASED [None]
  - NEUTROPHIL COUNT DECREASED [None]
  - SEPSIS [None]
